FAERS Safety Report 8646640 (Version 2)
Quarter: 2014Q3

REPORT INFORMATION
  Report Type: Spontaneous
  Country: IT (occurrence: IT)
  Receive Date: 20120702
  Receipt Date: 20140728
  Transmission Date: 20150326
  Serious: Yes (Other)
  Sender: FDA-Public Use
  Company Number: IT-RANBAXY-2011R1-42996

PATIENT
  Age: 80 Year
  Sex: Female

DRUGS (1)
  1. MINOCYCLINE HYDROCHLORIDE. [Suspect]
     Active Substance: MINOCYCLINE HYDROCHLORIDE
     Indication: DERMATITIS
     Dosage: 100 MG/DAY
     Route: 065
     Dates: start: 200502, end: 200603

REACTIONS (3)
  - Hepatitis acute [Recovered/Resolved]
  - Dysphagia [Recovered/Resolved]
  - Hepatic enzyme increased [Recovered/Resolved]
